FAERS Safety Report 16460692 (Version 1)
Quarter: 2019Q2

REPORT INFORMATION
  Report Type: Report from Study
  Country: None (occurrence: DE)
  Receive Date: 20190620
  Receipt Date: 20190620
  Transmission Date: 20190711
  Serious: Yes (Hospitalization, Other)
  Sender: FDA-Public Use
  Company Number: DE-ABBVIE-19K-062-2824921-00

PATIENT
  Age: 55 Year
  Sex: Male
  Weight: 80 kg

DRUGS (4)
  1. LERCANIDIPINA [Concomitant]
     Active Substance: LERCANIDIPINE
     Indication: PRODUCT USED FOR UNKNOWN INDICATION
     Route: 048
     Dates: start: 20150804, end: 20190313
  2. HULIO [Suspect]
     Active Substance: ADALIMUMAB
     Route: 058
     Dates: start: 20190613
  3. HUMIRA [Suspect]
     Active Substance: ADALIMUMAB
     Indication: PSORIASIS
     Route: 058
     Dates: start: 20160416, end: 20181212
  4. HULIO [Suspect]
     Active Substance: ADALIMUMAB
     Indication: PSORIASIS
     Route: 058
     Dates: start: 20181213, end: 20190420

REACTIONS (7)
  - Mitral valve prolapse [Unknown]
  - Pulmonary hypertension [Unknown]
  - Coronary artery disease [Unknown]
  - Chordae tendinae rupture [Unknown]
  - Upper respiratory tract infection [Unknown]
  - Mitral valve incompetence [Unknown]
  - Hypertension [Unknown]

NARRATIVE: CASE EVENT DATE: 20190310
